FAERS Safety Report 15566481 (Version 1)
Quarter: 2018Q4

REPORT INFORMATION
  Report Type: Spontaneous
  Country: SE (occurrence: SE)
  Receive Date: 20181030
  Receipt Date: 20181030
  Transmission Date: 20190205
  Serious: Yes (Other)
  Sender: FDA-Public Use
  Company Number: SE-TEVA-2018-SE-970147

PATIENT
  Age: 78 Year
  Sex: Male

DRUGS (21)
  1. MIDAZOLAM [Concomitant]
     Active Substance: MIDAZOLAM HYDROCHLORIDE
     Dates: start: 20180920
  2. LEUPRORELIN [Concomitant]
     Active Substance: LEUPROLIDE ACETATE
     Dosage: IMPLANTAT
     Dates: start: 20161017
  3. FURIX [Concomitant]
     Active Substance: FUROSEMIDE
     Dates: start: 20180923
  4. BETAPRED [Concomitant]
     Active Substance: BETAMETHASONE SODIUM PHOSPHATE
     Dates: start: 20180914
  5. FENTANYL. [Concomitant]
     Active Substance: FENTANYL
     Dosage: DEP?PL?STER
     Dates: start: 20170305
  6. ALVEDON [Concomitant]
     Active Substance: ACETAMINOPHEN
     Dates: start: 20160609
  7. DYNASTAT [Concomitant]
     Active Substance: PARECOXIB SODIUM
     Dosage: INJ
     Dates: start: 20180920
  8. GABAPENTIN. [Suspect]
     Active Substance: GABAPENTIN
     Indication: NEURALGIA
     Dosage: 900 MILLIGRAM DAILY;
     Route: 048
     Dates: start: 20180920, end: 20180922
  9. DIVISUN [Concomitant]
     Dates: start: 20170815
  10. BISOPROLOL [Concomitant]
     Active Substance: BISOPROLOL
     Dates: start: 20160225
  11. ESOMEPRAZOLE. [Concomitant]
     Active Substance: ESOMEPRAZOLE MAGNESIUM
     Dates: start: 20170222
  12. SATIVEX [Concomitant]
     Active Substance: NABIXIMOLS
     Dates: start: 20180224
  13. LASIX [Concomitant]
     Active Substance: FUROSEMIDE
     Dates: start: 20120208
  14. NEXIUM [Concomitant]
     Active Substance: ESOMEPRAZOLE MAGNESIUM
     Dates: start: 20180923
  15. CEFTRIAXONE. [Concomitant]
     Active Substance: CEFTRIAXONE
     Dates: start: 20180913
  16. FURIX [Concomitant]
     Active Substance: FUROSEMIDE
     Dates: start: 20180323
  17. BETAPRED [Concomitant]
     Active Substance: BETAMETHASONE SODIUM PHOSPHATE
     Dates: start: 20180920
  18. KALEORID [Concomitant]
     Active Substance: POTASSIUM CHLORIDE
     Dates: start: 20170816
  19. BRUFEN [Concomitant]
     Active Substance: IBUPROFEN
     Dates: start: 20170307
  20. SAROTEN [Concomitant]
     Active Substance: AMITRIPTYLINE
     Dates: start: 20170209
  21. HYDROMORPHONE HYDROCHLORIDE. [Concomitant]
     Active Substance: HYDROMORPHONE HYDROCHLORIDE
     Dosage: ^INJ^
     Dates: start: 20180919

REACTIONS (5)
  - Dysarthria [Unknown]
  - Hallucination [Unknown]
  - Urine output decreased [Unknown]
  - Confusional state [Unknown]
  - Dyskinesia [Unknown]

NARRATIVE: CASE EVENT DATE: 20180922
